FAERS Safety Report 8832303 (Version 6)
Quarter: 2014Q3

REPORT INFORMATION
  Report Type: Spontaneous
  Country: US (occurrence: US)
  Receive Date: 20121009
  Receipt Date: 20140804
  Transmission Date: 20150326
  Serious: Yes (Hospitalization, Disabling, Other)
  Sender: FDA-Public Use
  Company Number: US-009507513-1210USA002364

PATIENT
  Sex: Female
  Weight: 79.37 kg

DRUGS (1)
  1. NUVARING [Suspect]
     Active Substance: ETHINYL ESTRADIOL\ETONOGESTREL
     Indication: CONTRACEPTION
     Dosage: UNK
     Route: 067
     Dates: start: 200601

REACTIONS (13)
  - Maternal exposure before pregnancy [Unknown]
  - Haemorrhoids [Unknown]
  - Pulmonary infarction [Unknown]
  - Wisdom teeth removal [Unknown]
  - Herpes simplex [Unknown]
  - Neuropathy peripheral [Unknown]
  - Bronchitis [Unknown]
  - Drug ineffective [Not Recovered/Not Resolved]
  - Pulmonary embolism [Unknown]
  - Otitis externa [Unknown]
  - Haemoptysis [Unknown]
  - Bronchospasm [Unknown]
  - International normalised ratio increased [Unknown]

NARRATIVE: CASE EVENT DATE: 20060601
